FAERS Safety Report 7737025-4 (Version None)
Quarter: 2011Q3

REPORT INFORMATION
  Report Type: 
  Country: None (occurrence: None)
  Receive Date: 20110908
  Receipt Date: 20110826
  Transmission Date: 20111222
  Serious: Yes (Hospitalization)
  Sender: FDA-Public Use
  Company Number: US-ELI_LILLY_AND_COMPANY-US201004001193

PATIENT
  Sex: Female
  Weight: 80 kg

DRUGS (7)
  1. CALCIUM CARBONATE [Concomitant]
  2. FORTEO [Suspect]
     Indication: OSTEOPOROSIS
     Dosage: 20 UG, DAILY (1/D)
     Route: 058
     Dates: start: 20091019
  3. FORTEO [Suspect]
     Dosage: 20 UG, QD
     Route: 058
     Dates: start: 20110522
  4. ENBREL [Concomitant]
  5. PRAVASTATIN [Concomitant]
  6. FORTEO [Suspect]
     Dosage: 20 UG, DAILY (1/D)
     Route: 058
     Dates: end: 20110519
  7. VITAMIN D [Concomitant]

REACTIONS (16)
  - CHOLECYSTITIS [None]
  - CALCULUS BLADDER [None]
  - CONTUSION [None]
  - MUSCLE SPASMS [None]
  - GASTROINTESTINAL DISORDER [None]
  - DECREASED APPETITE [None]
  - ABDOMINAL PAIN UPPER [None]
  - CHOLELITHIASIS [None]
  - VOMITING [None]
  - BLISTER [None]
  - INSOMNIA [None]
  - MALAISE [None]
  - GASTRIC PH DECREASED [None]
  - PAIN IN EXTREMITY [None]
  - GASTRIC INFECTION [None]
  - DIARRHOEA [None]
